FAERS Safety Report 5255767-X (Version None)
Quarter: 2007Q1

REPORT INFORMATION
  Report Type: 
  Country: None (occurrence: None)
  Receive Date: 20070305
  Receipt Date: 20070226
  Transmission Date: 20070707
  Serious: Yes (Other)
  Sender: FDA-Public Use
  Company Number: US-PFIZER INC-2007015902

PATIENT
  Sex: Female
  Weight: 45.8 kg

DRUGS (1)
  1. CHANTIX [Suspect]
     Indication: EX-SMOKER
     Dates: start: 20070210, end: 20070219

REACTIONS (4)
  - DISABILITY [None]
  - FATIGUE [None]
  - NAUSEA [None]
  - VOMITING [None]
